FAERS Safety Report 5291214-X (Version None)
Quarter: 2007Q2

REPORT INFORMATION
  Report Type: 
  Country: None (occurrence: None)
  Receive Date: 20070409
  Receipt Date: 20070315
  Transmission Date: 20071010
  Serious: Yes (Hospitalization, Other)
  Sender: FDA-Public Use
  Company Number: US-PFIZER INC-2006149437

PATIENT
  Sex: Male
  Weight: 117.9 kg

DRUGS (3)
  1. BEXTRA [Suspect]
     Indication: PAIN MANAGEMENT
  2. BEXTRA [Suspect]
     Indication: INFLAMMATION
  3. BEXTRA [Suspect]
     Indication: ARTHRITIS

REACTIONS (2)
  - ANXIETY [None]
  - MYOCARDIAL INFARCTION [None]
